FAERS Safety Report 7594321-1 (Version None)
Quarter: 2011Q3

REPORT INFORMATION
  Report Type: 
  Country: None (occurrence: None)
  Receive Date: 20110706
  Receipt Date: 20110627
  Transmission Date: 20111222
  Serious: Yes (Hospitalization, Other)
  Sender: FDA-Public Use
  Company Number: US-ASTRAZENECA-2011SE39074

PATIENT
  Age: 59 Year
  Sex: Female

DRUGS (5)
  1. VITAMIN D [Concomitant]
     Dosage: 2000 UNIT DAILY
     Route: 048
  2. ARIMIDEX [Concomitant]
     Route: 048
  3. CRESTOR [Suspect]
     Route: 048
  4. SEROQUEL XR [Suspect]
     Route: 048
  5. CELEXA [Concomitant]
     Route: 048

REACTIONS (23)
  - RESTLESSNESS [None]
  - MALAISE [None]
  - APPETITE DISORDER [None]
  - OVERWEIGHT [None]
  - FATIGUE [None]
  - FEAR [None]
  - DISTURBANCE IN ATTENTION [None]
  - LETHARGY [None]
  - SLEEP DISORDER [None]
  - EPIDURAL ANAESTHESIA [None]
  - MENTAL STATUS CHANGES [None]
  - COMPUTERISED TOMOGRAM [None]
  - DEPRESSED MOOD [None]
  - RADIOTHERAPY TO BREAST [None]
  - BIOPSY BREAST [None]
  - ANXIETY [None]
  - VITAMIN D DEFICIENCY [None]
  - MAMMOGRAM [None]
  - BREAST CANCER [None]
  - MALIGNANT BREAST LUMP REMOVAL [None]
  - CHOLELITHIASIS [None]
  - TYPE V HYPERLIPIDAEMIA [None]
  - DECREASED ACTIVITY [None]
